FAERS Safety Report 15130030 (Version 1)
Quarter: 2018Q3

REPORT INFORMATION
  Report Type: Spontaneous
  Country: SE (occurrence: SE)
  Receive Date: 20180711
  Receipt Date: 20180711
  Transmission Date: 20181010
  Serious: Yes (Hospitalization)
  Sender: FDA-Public Use
  Company Number: SE-ASTRAZENECA-2018SE85585

PATIENT
  Age: 63 Year
  Sex: Male

DRUGS (9)
  1. NOZINAN [Concomitant]
     Active Substance: LEVOMEPROMAZINE
     Dates: start: 20131121
  2. ANTABUS [Concomitant]
     Active Substance: DISULFIRAM
     Dates: start: 20140828
  3. TROMBYL [Concomitant]
     Active Substance: ASPIRIN
     Dates: start: 20131121
  4. IMDUR [Concomitant]
     Active Substance: ISOSORBIDE MONONITRATE
     Dates: start: 20160209
  5. NOVOMIX [Concomitant]
     Active Substance: INSULIN ASPART
     Dates: start: 20150113
  6. ENALAPRIL [Concomitant]
     Active Substance: ENALAPRIL
     Dates: start: 20140704
  7. OXASCAND [Concomitant]
     Active Substance: OXAZEPAM
     Dates: start: 20131121
  8. PREGABALIN. [Concomitant]
     Active Substance: PREGABALIN
     Dates: start: 20150923
  9. FORXIGA [Suspect]
     Active Substance: DAPAGLIFLOZIN
     Indication: TYPE 2 DIABETES MELLITUS
     Route: 048
     Dates: start: 20150924, end: 20180428

REACTIONS (1)
  - Ketoacidosis [Recovered/Resolved]

NARRATIVE: CASE EVENT DATE: 20180428
